FAERS Safety Report 5426386-7 (Version None)
Quarter: 2007Q3

REPORT INFORMATION
  Report Type: 
  Country: None (occurrence: None)
  Receive Date: 20070731
  Receipt Date: 20070418
  Transmission Date: 20080115
  Serious: No
  Sender: FDA-Public Use
  Company Number: 2007PV028690

PATIENT
  Age: 65 Year
  Sex: Male
  Weight: 139.7 kg

DRUGS (8)
  1. EXENATIDE (EXENATIDE) PEN, DISPOSABLE [Suspect]
     Dosage: 5 UG, 2/D, SUBCUTANEOUS; 10 UG, 2/D, SUBCUTANEOUS; 5 UG, 2/D, SUBCUTANEOUS
     Route: 058
     Dates: start: 20070201, end: 20070301
  2. EXENATIDE (EXENATIDE) PEN, DISPOSABLE [Suspect]
     Dosage: 5 UG, 2/D, SUBCUTANEOUS; 10 UG, 2/D, SUBCUTANEOUS; 5 UG, 2/D, SUBCUTANEOUS
     Route: 058
     Dates: start: 20070301, end: 20070415
  3. EXENATIDE (EXENATIDE) PEN, DISPOSABLE [Suspect]
     Dosage: 5 UG, 2/D, SUBCUTANEOUS; 10 UG, 2/D, SUBCUTANEOUS; 5 UG, 2/D, SUBCUTANEOUS
     Route: 058
     Dates: start: 20070108
  4. EXENATIDE (EXENATIDE) PEN, DISPOSABLE [Suspect]
  5. NOVOLOG INJECTION [Concomitant]
  6. LANTUS [Concomitant]
  7. ACTOS [Concomitant]
  8. LANTUS [Concomitant]

REACTIONS (5)
  - ABDOMINAL PAIN UPPER [None]
  - DECREASED APPETITE [None]
  - HEADACHE [None]
  - STOMACH DISCOMFORT [None]
  - WEIGHT DECREASED [None]
